FAERS Safety Report 13912321 (Version 1)
Quarter: 2017Q3

REPORT INFORMATION
  Report Type: Spontaneous
  Country: US (occurrence: US)
  Receive Date: 20170828
  Receipt Date: 20170828
  Transmission Date: 20171127
  Serious: No
  Sender: FDA-Public Use
  Company Number: US-ROCHE-1142511

PATIENT
  Sex: Male

DRUGS (3)
  1. CALCITROL [Concomitant]
     Active Substance: CALCITRIOL
     Dosage: 0.75 - 0.5 UG
     Route: 065
  2. NUTROPIN [Suspect]
     Active Substance: SOMATROPIN
     Indication: HYPOPHOSPHATAEMIC RICKETS
     Route: 058
     Dates: start: 19920826
  3. LEUPROLIDE [Concomitant]
     Active Substance: LEUPROLIDE
     Dosage: LAST INJECTION WAS ON 31/JUL/2000
     Route: 065

REACTIONS (2)
  - Gingival erosion [Unknown]
  - Epigastric discomfort [Recovered/Resolved]
